FAERS Safety Report 12726343 (Version 3)
Quarter: 2016Q4

REPORT INFORMATION
  Report Type: Spontaneous
  Country: US (occurrence: US)
  Receive Date: 20160908
  Receipt Date: 20161212
  Transmission Date: 20170207
  Serious: Yes (Hospitalization, Other)
  Sender: FDA-Public Use
  Company Number: US-BAYER-2016-170788

PATIENT
  Age: 61 Year
  Sex: Female

DRUGS (3)
  1. BETASERON [Suspect]
     Active Substance: INTERFERON BETA-1B
     Indication: MULTIPLE SCLEROSIS
     Dosage: 3 MG, QOD
     Route: 058
     Dates: start: 20160721
  2. BETASERON [Suspect]
     Active Substance: INTERFERON BETA-1B
     Indication: MULTIPLE SCLEROSIS
     Dosage: 0.3 MG, QOD
     Route: 058
     Dates: start: 2005
  3. BETASERON [Suspect]
     Active Substance: INTERFERON BETA-1B
     Indication: MULTIPLE SCLEROSIS
     Dosage: 0.3 MG, QOD
     Route: 058
     Dates: start: 201007

REACTIONS (10)
  - Muscle spasms [None]
  - Hypoaesthesia [None]
  - Multiple sclerosis relapse [None]
  - Depression [None]
  - Stress [None]
  - Muscle spasms [None]
  - Poor quality sleep [None]
  - Multiple sclerosis relapse [Not Recovered/Not Resolved]
  - Urticaria [None]
  - Major depression [None]

NARRATIVE: CASE EVENT DATE: 2016
